FAERS Safety Report 13074907 (Version 1)
Quarter: 2016Q4

REPORT INFORMATION
  Report Type: Spontaneous
  Country: US (occurrence: US)
  Receive Date: 20161230
  Receipt Date: 20161230
  Transmission Date: 20170207
  Serious: No
  Sender: FDA-Public Use
  Company Number: US-PFIZER INC-2016592890

PATIENT
  Age: 75 Year
  Sex: Female

DRUGS (2)
  1. ZALEPLON. [Suspect]
     Active Substance: ZALEPLON
     Dosage: UNK
  2. MAXZIDE [Suspect]
     Active Substance: HYDROCHLOROTHIAZIDE\TRIAMTERENE
     Dosage: UNK

REACTIONS (1)
  - Drug hypersensitivity [Unknown]
